FAERS Safety Report 8883005 (Version 3)
Quarter: 2012Q4

REPORT INFORMATION
  Report Type: 
  Country: JP (occurrence: JP)
  Receive Date: 20121102
  Receipt Date: 20121126
  Transmission Date: 20130627
  Serious: Yes (Death)
  Sender: FDA-Public Use
  Company Number: PHHY2012JP098882

PATIENT
  Sex: Male

DRUGS (4)
  1. CICLOSPORIN [Suspect]
     Indication: HISTIOCYTOSIS HAEMATOPHAGIC
  2. CICLOSPORIN [Suspect]
     Indication: LYMPHOMA
  3. PLASMA [Concomitant]
  4. CHEMOTHERAPEUTICS [Concomitant]

REACTIONS (5)
  - T-cell lymphoma [Fatal]
  - Histiocytosis haematophagic [Fatal]
  - Pneumonia cytomegaloviral [Fatal]
  - Sepsis [Fatal]
  - Off label use [Unknown]
